FAERS Safety Report 18661474 (Version 1)
Quarter: 2020Q4

REPORT INFORMATION
  Report Type: Spontaneous
  Country: TH (occurrence: TH)
  Receive Date: 20201224
  Receipt Date: 20201224
  Transmission Date: 20210114
  Serious: Yes (Hospitalization)
  Sender: FDA-Public Use
  Company Number: TH-DSJP-DSJ-2020-139431AA

PATIENT
  Sex: Male

DRUGS (16)
  1. EDOXABAN [Suspect]
     Active Substance: EDOXABAN TOSYLATE
     Indication: ATRIAL FIBRILLATION
     Dosage: 60 MG, QD
     Route: 048
     Dates: end: 20181012
  2. BIO-QUINONE [Concomitant]
     Dosage: UNK
     Route: 065
  3. BISLOC [Concomitant]
     Dosage: UNK
     Route: 065
  4. FLUCONAZOLE. [Interacting]
     Active Substance: FLUCONAZOLE
     Indication: PRODUCT USED FOR UNKNOWN INDICATION
     Dosage: 200 MG, QD
     Route: 048
     Dates: start: 20180928
  5. JARDIANCE [Concomitant]
     Active Substance: EMPAGLIFLOZIN
     Dosage: UNK
     Route: 065
  6. ENTRESTO [Concomitant]
     Active Substance: SACUBITRIL\VALSARTAN
     Dosage: UNK
     Route: 065
  7. ZEMIGLO [Concomitant]
     Dosage: UNK
     Route: 065
  8. STILNOX [Concomitant]
     Active Substance: ZOLPIDEM TARTRATE
     Dosage: UNK
     Route: 065
  9. BESTATIN                           /00848101/ [Concomitant]
     Dosage: UNK
     Route: 065
  10. ALDACTONE [Concomitant]
     Active Substance: SPIRONOLACTONE
     Dosage: UNK
     Route: 065
  11. EDOXABAN [Interacting]
     Active Substance: EDOXABAN TOSYLATE
     Dosage: 60 MG, DAY
     Route: 048
     Dates: start: 20181017
  12. TRYPTANOL                          /00002202/ [Concomitant]
     Active Substance: AMITRIPTYLINE
     Dosage: UNK
     Route: 065
  13. PURIDE [Concomitant]
     Dosage: UNK
     Route: 065
  14. SENOKOT [Concomitant]
     Active Substance: SENNOSIDES
     Dosage: UNK
     Route: 065
  15. EDOXABAN [Interacting]
     Active Substance: EDOXABAN TOSYLATE
     Dosage: UNK
     Route: 065
  16. CRAVIT [Concomitant]
     Active Substance: LEVOFLOXACIN
     Dosage: 759 MG, QD
     Route: 048
     Dates: start: 20180928

REACTIONS (2)
  - Drug interaction [Unknown]
  - Haematuria [Recovered/Resolved]

NARRATIVE: CASE EVENT DATE: 20181012
